FAERS Safety Report 15367802 (Version 3)
Quarter: 2018Q4

REPORT INFORMATION
  Report Type: Report from Study
  Country: JP (occurrence: JP)
  Receive Date: 20180910
  Receipt Date: 20181207
  Transmission Date: 20190204
  Serious: Yes (Death, Life-Threatening, Hospitalization)
  Sender: FDA-Public Use
  Company Number: JP-EISAI MEDICAL RESEARCH-EC-2018-044946

PATIENT
  Age: 74 Year
  Sex: Male
  Weight: 61 kg

DRUGS (7)
  1. PORTOLAC [Concomitant]
     Active Substance: LACTITOL
  2. RIFXIMA [Concomitant]
     Active Substance: RIFAXIMIN
  3. LENVIMA [Suspect]
     Active Substance: LENVATINIB
     Indication: HEPATOCELLULAR CARCINOMA
     Route: 048
     Dates: start: 20180817, end: 20180906
  4. LACTULOSE. [Concomitant]
     Active Substance: LACTULOSE
  5. AMINOLEBAN EN [Concomitant]
     Active Substance: UNSPECIFIED INGREDIENT
  6. AMINOLEBAN [Concomitant]
     Active Substance: AMINO ACIDS
  7. MORIHEPAMIN [Concomitant]

REACTIONS (3)
  - Malignant neoplasm progression [Fatal]
  - Hepatic encephalopathy [Recovered/Resolved]
  - Oesophageal varices haemorrhage [Recovered/Resolved]

NARRATIVE: CASE EVENT DATE: 20180906
